FAERS Safety Report 9679434 (Version 1)
Quarter: 2013Q4

REPORT INFORMATION
  Report Type: Spontaneous
  Country: US (occurrence: US)
  Receive Date: 20131109
  Receipt Date: 20131109
  Transmission Date: 20140711
  Serious: No
  Sender: FDA-Public Use
  Company Number: US-SANOFI-AVENTIS-2013SA046045

PATIENT
  Age: 65 Year
  Sex: Female
  Weight: 58.97 kg

DRUGS (2)
  1. ALLEGRA-D [Suspect]
     Indication: SINUS CONGESTION
     Route: 048
     Dates: start: 20130501, end: 20130501
  2. RESTASIS [Concomitant]
     Indication: DRY EYE
     Dates: start: 2010

REACTIONS (1)
  - Insomnia [Unknown]
